FAERS Safety Report 4739888-3 (Version None)
Quarter: 2005Q3

REPORT INFORMATION
  Report Type: 
  Country: None (occurrence: None)
  Receive Date: 20050729
  Receipt Date: 20050323
  Transmission Date: 20060218
  Serious: Yes (Other)
  Sender: FDA-Public Use
  Company Number: 2005S1001487

PATIENT
  Age: 41 Year
  Sex: Male

DRUGS (5)
  1. APOMORPHINE HYDROCHLORIDE (APOMORPHINE HYDROCHLORIDE) [Suspect]
     Indication: PARKINSON'S DISEASE
     Dosage: 20 MG;SC
     Dates: start: 20050131
  2. LEVODOPA/BENSERAZIDE HYDROCHLORIDE [Concomitant]
  3. . [Concomitant]
  4. DOMPERIDONE [Concomitant]
  5. GABAPENTIN [Concomitant]

REACTIONS (3)
  - INJECTION SITE DERMATITIS [None]
  - INJECTION SITE ERYTHEMA [None]
  - INJECTION SITE SWELLING [None]
